FAERS Safety Report 10356815 (Version 2)
Quarter: 2015Q1

REPORT INFORMATION
  Report Type: Report from Study
  Country: MX (occurrence: MX)
  Receive Date: 20140801
  Receipt Date: 20150306
  Transmission Date: 20150720
  Serious: No
  Sender: FDA-Public Use
  Company Number: PHHY2014MX093122

PATIENT
  Age: 56 Year
  Sex: Female

DRUGS (6)
  1. TASIGNA [Suspect]
     Active Substance: NILOTINIB
     Dosage: 200 MG, Q12H
     Route: 048
     Dates: start: 20140718
  2. TASIGNA [Suspect]
     Active Substance: NILOTINIB
     Dosage: 600 MG, QD
     Route: 065
  3. VALSARTAN. [Concomitant]
     Active Substance: VALSARTAN
     Indication: HYPERTENSION
     Dosage: 80 MG, SINCE 7 YEARS AGO
     Route: 065
  4. CHLORTHALIDONE. [Concomitant]
     Active Substance: CHLORTHALIDONE
     Indication: HYPERTENSION
     Dosage: 25 MG, AT MORNING, SINCE 7 YEAR AGO
     Route: 065
  5. TASIGNA [Suspect]
     Active Substance: NILOTINIB
     Indication: CHRONIC MYELOID LEUKAEMIA
     Dosage: 600 MG, UNK
     Route: 048
     Dates: start: 20140711, end: 20140718
  6. ROSUVASTATINE [Concomitant]
     Active Substance: ROSUVASTATIN
     Indication: DYSLIPIDAEMIA
     Route: 065

REACTIONS (6)
  - Feeling hot [Recovering/Resolving]
  - Rash [Recovering/Resolving]
  - Flushing [Recovering/Resolving]
  - Burning sensation [Not Recovered/Not Resolved]
  - Pruritus [Recovering/Resolving]
  - Erythema [Recovering/Resolving]

NARRATIVE: CASE EVENT DATE: 20140713
